FAERS Safety Report 7383618-6 (Version None)
Quarter: 2011Q1

REPORT INFORMATION
  Report Type: 
  Country: None (occurrence: None)
  Receive Date: 20110325
  Receipt Date: 20110325
  Transmission Date: 20110831
  Serious: Yes (Life-Threatening, Hospitalization)
  Sender: FDA-Public Use
  Company Number: None

PATIENT
  Age: 26 Year
  Sex: Male
  Weight: 94.8018 kg

DRUGS (2)
  1. PROVIGIL [Suspect]
  2. MODAFINIL [Suspect]
     Dosage: 1 PILL ONCE A DAY PO
     Route: 048

REACTIONS (7)
  - OROPHARYNGEAL PAIN [None]
  - ASTHENIA [None]
  - PYREXIA [None]
  - BLOOD DISORDER [None]
  - PARAESTHESIA [None]
  - FATIGUE [None]
  - THERMAL BURN [None]
